FAERS Safety Report 5761015-4 (Version None)
Quarter: 2008Q2

REPORT INFORMATION
  Report Type: 
  Country: None (occurrence: None)
  Receive Date: 20080606
  Receipt Date: 20071011
  Transmission Date: 20081010
  Serious: No
  Sender: FDA-Public Use
  Company Number: US-ASTRAZENECA-2007UW23708

PATIENT
  Age: 42 Year
  Sex: Female

DRUGS (1)
  1. PRILOSEC [Suspect]
     Indication: DYSPEPSIA
     Route: 048
     Dates: start: 20070701

REACTIONS (3)
  - FLATULENCE [None]
  - FOOD INTERACTION [None]
  - NAUSEA [None]
